FAERS Safety Report 22147025 (Version 1)
Quarter: 2023Q1

REPORT INFORMATION
  Report Type: Spontaneous
  Country: US (occurrence: None)
  Receive Date: 20230328
  Receipt Date: 20230328
  Transmission Date: 20230418
  Serious: Yes (Other)
  Sender: FDA-Public Use
  Company Number: US-ROCHE-3317118

PATIENT
  Age: 75 Year
  Sex: Male
  Weight: 66.284 kg

DRUGS (4)
  1. RITUXAN [Suspect]
     Active Substance: RITUXIMAB
     Indication: Follicular lymphoma
     Dosage: RECEIVED RITUXAN FOR 3 MONTHS
     Route: 065
     Dates: start: 2010
  2. RITUXAN [Suspect]
     Active Substance: RITUXIMAB
     Dosage: RECEIVED 12 CYCLES OF RITUXAN
     Route: 065
     Dates: start: 2015, end: 2016
  3. LENALIDOMIDE [Concomitant]
     Active Substance: LENALIDOMIDE
     Indication: Follicular lymphoma
     Dosage: NO
     Route: 065
     Dates: start: 2010, end: 2011
  4. KEYTRUDA [Concomitant]
     Active Substance: PEMBROLIZUMAB
     Indication: Follicular lymphoma
     Dosage: RECEIVED 12 CYCLES
     Dates: start: 2015, end: 2016

REACTIONS (1)
  - Lymphoma [Unknown]

NARRATIVE: CASE EVENT DATE: 20230101
